FAERS Safety Report 6369868-6 (Version None)
Quarter: 2009Q3

REPORT INFORMATION
  Report Type: 
  Country: None (occurrence: None)
  Receive Date: 20090923
  Receipt Date: 20080201
  Transmission Date: 20100115
  Serious: Yes (Hospitalization)
  Sender: FDA-Public Use
  Company Number: US-ASTRAZENECA-2006UW09055

PATIENT
  Age: 432 Month
  Sex: Male
  Weight: 129.3 kg

DRUGS (6)
  1. SEROQUEL [Suspect]
     Indication: BIPOLAR DISORDER
     Route: 048
     Dates: start: 20000101, end: 20060101
  2. SEROQUEL [Suspect]
     Dosage: 200-800 MG
     Route: 048
     Dates: start: 20040817
  3. RISPERDAL [Suspect]
     Indication: BIPOLAR DISORDER
     Route: 048
     Dates: start: 20000101, end: 20010101
  4. ZOLOFT [Concomitant]
     Dosage: 50-100 MG AT BED TIME
     Route: 048
     Dates: start: 20040817
  5. DEPAKOTE [Concomitant]
     Route: 048
     Dates: start: 20040817
  6. AVANDIA [Concomitant]
     Route: 048
     Dates: start: 20041104

REACTIONS (2)
  - DIABETES MELLITUS [None]
  - DIABETES MELLITUS INADEQUATE CONTROL [None]
